FAERS Safety Report 20801946 (Version 1)
Quarter: 2022Q2

REPORT INFORMATION
  Report Type: Report from Study
  Country: US (occurrence: US)
  Receive Date: 20220509
  Receipt Date: 20220509
  Transmission Date: 20220721
  Serious: Yes (Other)
  Sender: FDA-Public Use
  Company Number: US-CELGENE-USA-20220207442

PATIENT
  Age: 63 Year
  Sex: Female
  Weight: 117.93 kg

DRUGS (2)
  1. POMALYST [Suspect]
     Active Substance: POMALIDOMIDE
     Indication: Plasma cell myeloma
     Dosage: 3 MILLIGRAM
     Route: 048
     Dates: start: 202106
  2. POMALYST [Suspect]
     Active Substance: POMALIDOMIDE
     Dosage: 4 MILLIGRAM, 21 IN 28 DAYS
     Route: 048
     Dates: start: 202108

REACTIONS (2)
  - Infection [Recovering/Resolving]
  - Pain in extremity [Recovering/Resolving]
